FAERS Safety Report 6011617-5 (Version None)
Quarter: 2008Q4

REPORT INFORMATION
  Report Type: 
  Country: None (occurrence: None)
  Receive Date: 20081218
  Receipt Date: 20080104
  Transmission Date: 20090506
  Serious: Yes (Death, Hospitalization)
  Sender: FDA-Public Use
  Company Number: US-ROCHE-539852

PATIENT
  Age: 59 Year
  Sex: Male
  Weight: 70 kg

DRUGS (12)
  1. CAPECITABINE [Suspect]
     Dosage: GIVEN ON DAYS 1-14 OF EACH 21-DAY-CYCLE.
     Route: 048
     Dates: start: 20071116, end: 20071228
  2. CETUXIMAB [Suspect]
     Dosage: LOADING DOSE.  GIVEN ON DAY 1 CYCLE 1.
     Route: 042
     Dates: start: 20071116, end: 20071116
  3. CETUXIMAB [Suspect]
     Dosage: GIVEN ON DAYS 1, 8, 15 OF EACH 21 DAY CYCLE.
     Route: 042
     Dates: start: 20071123, end: 20071228
  4. OXALIPLATIN [Suspect]
     Dosage: GIVEN ON DAY 1 OF EACH 21-DAY-CYCLE.
     Route: 042
     Dates: start: 20071116, end: 20071228
  5. OXYCODONE [Concomitant]
     Dosage: TAKEN AS NEEDED.
  6. LASIX [Concomitant]
     Route: 048
  7. DEXAMETHASONE [Concomitant]
     Indication: NAUSEA
     Dosage: TAKEN AS NEEDED.
     Route: 048
  8. COMPAZINE [Concomitant]
     Indication: NAUSEA
     Dosage: TAKEN AS NEEDED.
     Route: 048
  9. ZOFRAN [Concomitant]
     Indication: NAUSEA
     Dosage: TAKEN AS NEEDED.
     Route: 048
  10. MEGACE [Concomitant]
     Dosage: MEGACE ES. DOSING AMOUNT: 625 MG/5 ML.
  11. ZOFRAN [Concomitant]
     Dosage: 4 MG TWICE A DAY AS REQUIRED.
     Route: 048
  12. MEGACE [Concomitant]
     Dosage: REPORTED AS MEGACE ES 625 MG / 5 ML.

REACTIONS (8)
  - ACUTE PRERENAL FAILURE [None]
  - CLOSTRIDIUM DIFFICILE TOXIN TEST POSITIVE [None]
  - DEATH [None]
  - HEPATORENAL SYNDROME [None]
  - METABOLIC ACIDOSIS [None]
  - OESOPHAGEAL VARICES HAEMORRHAGE [None]
  - RENAL INJURY [None]
  - RESPIRATORY ALKALOSIS [None]
